FAERS Safety Report 10748004 (Version 1)
Quarter: 2015Q1

REPORT INFORMATION
  Report Type: Spontaneous
  Country: CA (occurrence: None)
  Receive Date: 20150127
  Receipt Date: 20150127
  Transmission Date: 20150721
  Serious: Yes (Congenital Anomaly, Other)
  Sender: FDA-Public Use
  Company Number: 20150119

PATIENT
  Sex: Female

DRUGS (3)
  1. HYDROXYCHLOROQUINE [Suspect]
     Active Substance: HYDROXYCHLOROQUINE
     Dosage: TRANSPLACENTAL ?
     Route: 064
  2. METHOTREXATE [Suspect]
     Active Substance: METHOTREXATE
     Dosage: TRANSPLACENTAL
     Route: 064
  3. FOLIC ACID (FOLIC ACID) [Concomitant]
     Active Substance: FOLIC ACID

REACTIONS (2)
  - Maternal drugs affecting foetus [None]
  - Anterior chamber cleavage syndrome [None]
